FAERS Safety Report 6779289-X (Version None)
Quarter: 2010Q2

REPORT INFORMATION
  Report Type: 
  Country: None (occurrence: None)
  Receive Date: 20100618
  Receipt Date: 20100609
  Transmission Date: 20101027
  Serious: Yes (Hospitalization)
  Sender: FDA-Public Use
  Company Number: FR-SANOFI-AVENTIS-2010SA033054

PATIENT
  Age: 73 Year
  Sex: Male

DRUGS (12)
  1. PLAVIX [Suspect]
     Route: 048
     Dates: start: 20100408, end: 20100419
  2. LOVENOX [Suspect]
     Route: 058
     Dates: start: 20100408, end: 20100419
  3. KARDEGIC [Suspect]
     Route: 048
     Dates: start: 20100408, end: 20100419
  4. TRIATEC [Suspect]
     Route: 048
     Dates: start: 20100408, end: 20100415
  5. TEGELINE [Suspect]
     Route: 042
     Dates: start: 20100416, end: 20100419
  6. BACTRIM DS [Suspect]
     Route: 048
     Dates: start: 20100409, end: 20100419
  7. PREVISCAN [Suspect]
     Route: 048
     Dates: start: 20100412, end: 20100416
  8. CARDENSIEL [Concomitant]
  9. RISORDAN [Concomitant]
  10. CORTANCYL [Concomitant]
  11. INIPOMP [Concomitant]
  12. TOPALGIC [Concomitant]

REACTIONS (1)
  - RENAL FAILURE ACUTE [None]
